FAERS Safety Report 17467426 (Version 2)
Quarter: 2020Q2

REPORT INFORMATION
  Report Type: Spontaneous
  Country: US (occurrence: US)
  Receive Date: 20200227
  Receipt Date: 20200414
  Transmission Date: 20200713
  Serious: No
  Sender: FDA-Public Use
  Company Number: US-PFIZER INC-2020086627

PATIENT
  Age: 56 Year
  Sex: Female

DRUGS (1)
  1. IBRANCE [Suspect]
     Active Substance: PALBOCICLIB
     Indication: BREAST CANCER FEMALE
     Dosage: 75 MG, CYCLIC (EVERY DAY FOR 21 CONSECUTIVE DAYS FOLLOWED BY 7 DAYS OFF)
     Route: 048
     Dates: start: 20191227

REACTIONS (4)
  - Nausea [Unknown]
  - Decreased appetite [Unknown]
  - Neoplasm progression [Unknown]
  - Fatigue [Unknown]
